FAERS Safety Report 5089768-1 (Version None)
Quarter: 2006Q3

REPORT INFORMATION
  Report Type: 
  Country: None (occurrence: None)
  Receive Date: 20060731
  Receipt Date: 20060428
  Transmission Date: 20061208
  Serious: Yes (Hospitalization)
  Sender: FDA-Public Use
  Company Number: US200604001618

PATIENT
  Sex: Female

DRUGS (2)
  1. FORTEO [Suspect]
     Dates: start: 20051201
  2. FORTEO [Concomitant]

REACTIONS (2)
  - ADVERSE DRUG REACTION [None]
  - HYPERTENSION [None]
